FAERS Safety Report 16649971 (Version 4)
Quarter: 2021Q1

REPORT INFORMATION
  Report Type: Spontaneous
  Country: PL (occurrence: PL)
  Receive Date: 20190731
  Receipt Date: 20210326
  Transmission Date: 20210419
  Serious: Yes (Death, Hospitalization)
  Sender: FDA-Public Use
  Company Number: PL-ROCHE-2366485

PATIENT
  Age: 61 Year
  Sex: Male

DRUGS (4)
  1. ACTILYSE [Suspect]
     Active Substance: ALTEPLASE
     Indication: PERIPHERAL ISCHAEMIA
     Dosage: FLOW 1 ML / H?DATE OF MOST RECENT DOSE OF ALTEPLASE: 08/MAR/2013
     Route: 065
     Dates: start: 20130306
  2. HEPARIN [Concomitant]
     Active Substance: HEPARIN SODIUM
     Indication: PERIPHERAL ISCHAEMIA
     Dosage: 1000J/H
     Dates: start: 20130306, end: 20130307
  3. HEPARIN [Concomitant]
     Active Substance: HEPARIN SODIUM
     Indication: ANEURYSM
     Dosage: 1200J/H
     Dates: start: 20130308, end: 20130308
  4. ACTILYSE [Suspect]
     Active Substance: ALTEPLASE
     Indication: PERIPHERAL ARTERY THROMBOSIS

REACTIONS (11)
  - Blood pressure increased [Unknown]
  - Haemorrhage [Fatal]
  - Off label use [Unknown]
  - General physical health deterioration [Fatal]
  - Pain in extremity [Unknown]
  - Circulatory collapse [Fatal]
  - Peripheral artery aneurysm rupture [Fatal]
  - Cardiac arrest [Fatal]
  - Respiratory failure [Fatal]
  - Catheter site haemorrhage [Unknown]
  - Intentional product use issue [Unknown]

NARRATIVE: CASE EVENT DATE: 20130306
